FAERS Safety Report 14285474 (Version 1)
Quarter: 2017Q4

REPORT INFORMATION
  Report Type: Spontaneous
  Country: US (occurrence: US)
  Receive Date: 20171214
  Receipt Date: 20171214
  Transmission Date: 20180321
  Serious: No
  Sender: FDA-Public Use
  Company Number: None

PATIENT
  Sex: Female
  Weight: 103.5 kg

DRUGS (15)
  1. PROAIR HFA [Suspect]
     Active Substance: ALBUTEROL SULFATE
     Indication: BRONCHITIS
     Dosage: OTHER STRENGTH:(CFC-F)200D ORAL;QUANTITY:2 PUFF(S);?
     Route: 055
  2. NOVOLOG [Concomitant]
     Active Substance: INSULIN ASPART
  3. TYLENOL EXTRA STRENGTH [Concomitant]
     Active Substance: ACETAMINOPHEN
  4. LANTUS [Concomitant]
     Active Substance: INSULIN GLARGINE
  5. PROAIR HFA [Suspect]
     Active Substance: ALBUTEROL SULFATE
     Indication: ASTHMA
     Dosage: OTHER STRENGTH:(CFC-F)200D ORAL;QUANTITY:2 PUFF(S);?
     Route: 055
  6. PROAIR HFA [Suspect]
     Active Substance: ALBUTEROL SULFATE
     Indication: EMPHYSEMA
     Dosage: OTHER STRENGTH:(CFC-F)200D ORAL;QUANTITY:2 PUFF(S);?
     Route: 055
  7. MELOXICAM. [Concomitant]
     Active Substance: MELOXICAM
  8. GABAPENTIN. [Concomitant]
     Active Substance: GABAPENTIN
  9. LAMOTRIGINE. [Concomitant]
     Active Substance: LAMOTRIGINE
  10. WOMEN^S GENTLE LAXATIVES [Concomitant]
  11. TRAZODONE [Concomitant]
     Active Substance: TRAZODONE HYDROCHLORIDE
  12. OMEPRAZOLE. [Concomitant]
     Active Substance: OMEPRAZOLE
  13. LEVOTHYROXINE. [Concomitant]
     Active Substance: LEVOTHYROXINE
  14. DOCUSATE SODIUM. [Concomitant]
     Active Substance: DOCUSATE SODIUM
  15. FLUOXETINE HCL [Concomitant]
     Active Substance: FLUOXETINE HYDROCHLORIDE

REACTIONS (1)
  - Drug ineffective [None]
